FAERS Safety Report 5959753-3 (Version None)
Quarter: 2008Q4

REPORT INFORMATION
  Report Type: 
  Country: None (occurrence: None)
  Receive Date: 20081119
  Receipt Date: 20081119
  Transmission Date: 20090506
  Serious: Yes (Hospitalization)
  Sender: FDA-Public Use
  Company Number: None

PATIENT
  Age: 49 Year
  Sex: Male
  Weight: 90 kg

DRUGS (9)
  1. ENOXAPARIN SODIUM [Suspect]
     Indication: JUGULAR VEIN THROMBOSIS
     Dosage: 80MG BID SUBQ
     Route: 058
     Dates: start: 20081010, end: 20081020
  2. ACETYLCYSTEINE [Concomitant]
  3. CLONIDINE [Concomitant]
  4. LANSOPRAZOLE [Concomitant]
  5. DIHENHYDRAMINE [Concomitant]
  6. DOCUSATE [Concomitant]
  7. SENNA [Concomitant]
  8. LEVOFLOXACIN [Concomitant]
  9. OXYCODONE HCL [Concomitant]

REACTIONS (3)
  - ABDOMINAL PAIN [None]
  - HAEMOGLOBIN DECREASED [None]
  - RETROPERITONEAL HAEMORRHAGE [None]
